FAERS Safety Report 6974881-1 (Version None)
Quarter: 2010Q3

REPORT INFORMATION
  Report Type: 
  Country: None (occurrence: None)
  Receive Date: 20100909
  Receipt Date: 20081219
  Transmission Date: 20110219
  Serious: No
  Sender: FDA-Public Use
  Company Number: US-WYE-H07383308

PATIENT
  Age: 66 Year
  Sex: Female

DRUGS (7)
  1. PRISTIQ [Suspect]
     Indication: DEPRESSION
     Route: 048
     Dates: start: 20081101
  2. LOTENSIN [Concomitant]
  3. KLONOPIN [Concomitant]
  4. TRAZODONE HCL [Concomitant]
  5. SEROQUEL [Concomitant]
  6. METFORMIN [Concomitant]
  7. SYNTHROID [Concomitant]

REACTIONS (2)
  - ACNE [None]
  - RASH PUSTULAR [None]
